FAERS Safety Report 24616862 (Version 1)
Quarter: 2024Q4

REPORT INFORMATION
  Report Type: Spontaneous
  Country: US (occurrence: US)
  Receive Date: 20241114
  Receipt Date: 20241114
  Transmission Date: 20250115
  Serious: No
  Sender: OTSUKA
  Company Number: US-OTSUKA-2024_012929

PATIENT
  Sex: Male
  Weight: 86.18 kg

DRUGS (1)
  1. NUEDEXTA [Suspect]
     Active Substance: DEXTROMETHORPHAN HYDROBROMIDE\QUINIDINE SULFATE
     Indication: Affect lability
     Dosage: 1 DF BID (ONE IN THE MORNING AND ONE AT NIGHT)
     Route: 065

REACTIONS (2)
  - Disease recurrence [Unknown]
  - Product dose omission issue [Unknown]
